FAERS Safety Report 6300507-6 (Version None)
Quarter: 2009Q3

REPORT INFORMATION
  Report Type: 
  Country: None (occurrence: None)
  Receive Date: 20090806
  Receipt Date: 20090120
  Transmission Date: 20100115
  Serious: No
  Sender: FDA-Public Use
  Company Number: US-ABBOTT-09P-163-0499004-00

PATIENT
  Sex: Male

DRUGS (12)
  1. DEPAKOTE ER [Suspect]
     Indication: CONVULSION
     Dosage: 2000 MG DAILY
  2. DURAGESIC-100 [Concomitant]
     Indication: DRUG USE FOR UNKNOWN INDICATION
     Route: 062
  3. OXYCODONE HCL [Concomitant]
     Indication: DRUG USE FOR UNKNOWN INDICATION
  4. CYMBALTA [Concomitant]
     Indication: DRUG USE FOR UNKNOWN INDICATION
  5. XANAX [Concomitant]
     Indication: DRUG USE FOR UNKNOWN INDICATION
  6. PROTONIX [Concomitant]
     Indication: DRUG USE FOR UNKNOWN INDICATION
  7. NAMENDA [Concomitant]
     Indication: DRUG USE FOR UNKNOWN INDICATION
  8. DEPLIN [Concomitant]
     Indication: DRUG USE FOR UNKNOWN INDICATION
  9. STALEVO 100 [Concomitant]
     Indication: DRUG USE FOR UNKNOWN INDICATION
  10. ATENOLOL [Concomitant]
     Indication: DRUG USE FOR UNKNOWN INDICATION
  11. DESMOPRESSIN ACETATE [Concomitant]
     Indication: DRUG USE FOR UNKNOWN INDICATION
  12. TESTOSTERONE [Concomitant]
     Indication: DRUG USE FOR UNKNOWN INDICATION

REACTIONS (1)
  - ANTICONVULSANT DRUG LEVEL BELOW THERAPEUTIC [None]
